FAERS Safety Report 6621798-8 (Version None)
Quarter: 2010Q1

REPORT INFORMATION
  Report Type: 
  Country: None (occurrence: None)
  Receive Date: 20100309
  Receipt Date: 20100304
  Transmission Date: 20100710
  Serious: Yes (Death, Other)
  Sender: FDA-Public Use
  Company Number: PHHY2009JP25055

PATIENT
  Age: 61 Year
  Sex: Male
  Weight: 155 kg

DRUGS (2)
  1. GLEEVEC [Suspect]
     Indication: PULMONARY ARTERIAL HYPERTENSION
     Dosage: 400 MG/DAY
     Route: 048
     Dates: start: 20090209, end: 20090225
  2. GLEEVEC [Suspect]
     Dosage: 200 MG/DAY
     Route: 048
     Dates: end: 20090401

REACTIONS (10)
  - BRAIN NATRIURETIC PEPTIDE INCREASED [None]
  - CONCOMITANT DISEASE AGGRAVATED [None]
  - CONDITION AGGRAVATED [None]
  - DRUG INEFFECTIVE [None]
  - ERYTHEMA [None]
  - FACE OEDEMA [None]
  - ILEUS [None]
  - INTESTINAL OBSTRUCTION [None]
  - OEDEMA PERIPHERAL [None]
  - PNEUMONIA [None]
